FAERS Safety Report 4407884-1 (Version None)
Quarter: 2004Q3

REPORT INFORMATION
  Report Type: 
  Country: None (occurrence: None)
  Receive Date: 20040721
  Receipt Date: 20040708
  Transmission Date: 20050211
  Serious: Yes (Hospitalization)
  Sender: FDA-Public Use
  Company Number: HQ5161311NOV2002

PATIENT
  Age: 73 Year
  Sex: Female
  Weight: 45.9 kg

DRUGS (10)
  1. MYLOTARG [Suspect]
     Indication: ACUTE MYELOID LEUKAEMIA
     Dosage: 17 MG 1X PER 1 DAY, INTRAVENOUS
     Route: 042
     Dates: start: 20020924, end: 20020924
  2. PREDNISONE (PREDNISONE) [Concomitant]
  3. PREVACID [Concomitant]
  4. SENOKOT [Concomitant]
  5. VITAMINS NOS (VITAMINS NOS) [Concomitant]
  6. ZOSYN [Concomitant]
  7. DE-GAS (SIMETHICONE) [Concomitant]
  8. DIFLUCAN [Concomitant]
  9. LEVAQUIN [Concomitant]
  10. GLYBURIDE [Concomitant]

REACTIONS (19)
  - ASCITES [None]
  - BLAST CELL COUNT INCREASED [None]
  - CARDIOMEGALY [None]
  - CATHETER RELATED INFECTION [None]
  - CHILLS [None]
  - DISEASE PROGRESSION [None]
  - DYSPNOEA [None]
  - FEBRILE NEUTROPENIA [None]
  - HAEMOGLOBIN DECREASED [None]
  - LIVER DISORDER [None]
  - MIGRAINE [None]
  - OEDEMA [None]
  - PERICARDIAL EFFUSION [None]
  - PERITONEAL HAEMORRHAGE [None]
  - PLATELET COUNT DECREASED [None]
  - PLEURAL EFFUSION [None]
  - SPLENOMEGALY [None]
  - WEIGHT INCREASED [None]
  - WHITE BLOOD CELL COUNT DECREASED [None]
